FAERS Safety Report 5411432-7 (Version None)
Quarter: 2007Q3

REPORT INFORMATION
  Report Type: 
  Country: None (occurrence: None)
  Receive Date: 20070810
  Receipt Date: 20070731
  Transmission Date: 20080115
  Serious: Yes (Death)
  Sender: FDA-Public Use
  Company Number: B0482681A

PATIENT
  Age: 29 Year
  Sex: Female

DRUGS (2)
  1. PARACETAMOL [Suspect]
     Indication: DRUG USE FOR UNKNOWN INDICATION
     Route: 048
  2. CLOZARIL [Suspect]
     Indication: SCHIZOPHRENIA
     Dosage: 600MG PER DAY
     Route: 048
     Dates: start: 20010907

REACTIONS (1)
  - OVERDOSE [None]
